FAERS Safety Report 7322206-4 (Version None)
Quarter: 2011Q1

REPORT INFORMATION
  Report Type: 
  Country: None (occurrence: None)
  Receive Date: 20110301
  Receipt Date: 20110223
  Transmission Date: 20110831
  Serious: Yes (Hospitalization, Other)
  Sender: FDA-Public Use
  Company Number: US-ASTRAZENECA-2007UW06360

PATIENT
  Age: 31 Year
  Sex: Female
  Weight: 113.4 kg

DRUGS (37)
  1. SEROQUEL [Suspect]
     Route: 048
     Dates: start: 20030609
  2. SEROQUEL [Suspect]
     Route: 048
     Dates: start: 20050714
  3. NEURONTIN [Concomitant]
     Dosage: 400MG 1 AT  MORNING AND 3 AT NIGHT
     Route: 048
     Dates: start: 20050714
  4. HYDROCODONE BITARTRATE + ACETAMINOPHEN [Concomitant]
     Dosage: 10/500 STRENGTH
     Route: 048
     Dates: start: 20030822
  5. TRAZODONE HCL [Concomitant]
     Dates: start: 20051020
  6. TREGERTOL [Concomitant]
     Dates: start: 20060908
  7. SEROQUEL [Suspect]
     Indication: DEPRESSION
     Route: 048
     Dates: start: 19970101
  8. LITHIUM CARBONATE [Concomitant]
  9. LASIX [Concomitant]
     Dates: start: 20051020
  10. ZOCOR [Concomitant]
     Dates: start: 20060908
  11. PREMARIN [Concomitant]
     Dates: start: 20060908
  12. SEROQUEL [Suspect]
     Route: 048
     Dates: start: 20050714
  13. RISPERDAL [Concomitant]
     Dates: start: 20010101
  14. PROZAC [Concomitant]
     Dosage: 90 MG WEEKLY
     Route: 048
     Dates: start: 20010427
  15. CRESTOR [Concomitant]
     Route: 048
     Dates: start: 20050714
  16. DIFLUCAN [Concomitant]
     Dosage: 200 MG BY MOUTH NOW THEN 100 MG BY MOUTH EVERY DAY TIMES 4 DAYS
     Route: 048
     Dates: start: 20050714
  17. SEROQUEL [Suspect]
     Dosage: 20 MG, 200 MG
     Route: 048
     Dates: start: 20010901
  18. SEROQUEL [Suspect]
     Route: 048
     Dates: start: 20030609
  19. SEROQUEL [Suspect]
     Route: 048
     Dates: start: 20050714
  20. SEROQUEL [Suspect]
     Route: 048
     Dates: start: 20051020
  21. TRAZODONE HCL [Concomitant]
     Route: 048
     Dates: start: 20050714
  22. SEROQUEL [Suspect]
     Indication: BIPOLAR DISORDER
     Route: 048
     Dates: start: 19970101
  23. SEROQUEL [Suspect]
     Indication: POST-TRAUMATIC STRESS DISORDER
     Route: 048
     Dates: start: 19970101
  24. SEROQUEL [Suspect]
     Dosage: 20 MG, 200 MG
     Route: 048
     Dates: start: 20010901
  25. SEROQUEL [Suspect]
     Route: 048
     Dates: start: 20060908
  26. DIPHENHYDRAMINE [Concomitant]
     Dates: start: 20000101
  27. DARVOCET-N 100 [Concomitant]
     Indication: PAIN
     Dosage: TAKEN ONE BY MOUTH 4 TIMES DAILY AS NEEDED FOR PAIN
     Route: 048
     Dates: start: 20050714
  28. SEROQUEL [Suspect]
     Dosage: 20 MG, 200 MG
     Route: 048
     Dates: start: 20010901
  29. SEROQUEL [Suspect]
     Route: 048
     Dates: start: 20030609
  30. SEROQUEL [Suspect]
     Route: 048
     Dates: start: 20051020
  31. SEROQUEL [Suspect]
     Route: 048
     Dates: start: 20060908
  32. SEROQUEL [Suspect]
     Route: 048
     Dates: start: 20051020
  33. SEROQUEL [Suspect]
     Route: 048
     Dates: start: 20060908
  34. DEPAKOTE [Concomitant]
  35. MEPERIDINE HCL [Concomitant]
     Dates: start: 19980101
  36. LIPITOR [Concomitant]
     Dates: start: 20051020
  37. LASIX [Concomitant]
     Route: 048
     Dates: start: 20050714

REACTIONS (6)
  - TYPE 2 DIABETES MELLITUS [None]
  - CELLULITIS [None]
  - HYPERCHOLESTEROLAEMIA [None]
  - UTERINE DISORDER [None]
  - VAGINAL HAEMORRHAGE [None]
  - BLOOD CHOLESTEROL INCREASED [None]
